FAERS Safety Report 16168627 (Version 1)
Quarter: 2019Q2

REPORT INFORMATION
  Report Type: Spontaneous
  Country: US (occurrence: US)
  Receive Date: 20190408
  Receipt Date: 20190408
  Transmission Date: 20190711
  Serious: No
  Sender: FDA-Public Use
  Company Number: US-DRREDDYS-USA/USA/19/0109279

PATIENT
  Sex: Female
  Weight: 58.5 kg

DRUGS (7)
  1. ATORVASTATIN TABLETS 10MG, 20 MG, 40 MG (091650) [Concomitant]
     Active Substance: ATORVASTATIN
     Indication: HYPERCHOLESTEROLAEMIA
  2. ARMOUR THYROID [Concomitant]
     Active Substance: THYROID, PORCINE
     Indication: THYROID DISORDER
  3. CLOPIDOGREL BISULFATE 75 MG [Suspect]
     Active Substance: CLOPIDOGREL BISULFATE
     Indication: CARDIAC DISORDER
     Route: 048
     Dates: start: 20190113, end: 20190306
  4. LEVOTHYROXINE. [Concomitant]
     Active Substance: LEVOTHYROXINE
     Indication: THYROID DISORDER
  5. FISH OIL [Concomitant]
     Active Substance: FISH OIL
     Indication: PRODUCT USED FOR UNKNOWN INDICATION
  6. VITAMIN D2 [Concomitant]
     Active Substance: ERGOCALCIFEROL
     Indication: VITAMIN SUPPLEMENTATION
  7. VITAMIN K2 [Concomitant]
     Active Substance: MENAQUINONE 6
     Indication: VITAMIN SUPPLEMENTATION

REACTIONS (7)
  - Feeling abnormal [Unknown]
  - Nervousness [Recovered/Resolved]
  - Loss of personal independence in daily activities [Unknown]
  - Asthenia [Unknown]
  - Drug ineffective [Recovered/Resolved]
  - Lethargy [Recovered/Resolved]
  - Product quality issue [Unknown]
